FAERS Safety Report 6214636-9 (Version None)
Quarter: 2009Q2

REPORT INFORMATION
  Report Type: 
  Country: None (occurrence: None)
  Receive Date: 20090602
  Receipt Date: 20090518
  Transmission Date: 20091009
  Serious: Yes (Hospitalization)
  Sender: FDA-Public Use
  Company Number: 2009PL000017

PATIENT
  Age: 69 Year
  Sex: Male

DRUGS (3)
  1. ALLOPURINOL [Suspect]
     Indication: HYPERURICAEMIA
     Dosage: 200 MG; QD;
  2. AMLODIPINE [Concomitant]
  3. EPROSARTAN [Concomitant]

REACTIONS (11)
  - BILIARY TRACT DISORDER [None]
  - CHOLESTASIS [None]
  - DRUG HYPERSENSITIVITY [None]
  - GRANULOMATOUS LIVER DISEASE [None]
  - HAEMATURIA [None]
  - HAEMOGLOBIN DECREASED [None]
  - HEPATIC NECROSIS [None]
  - MYALGIA [None]
  - PROTEIN URINE PRESENT [None]
  - RESPIRATORY RATE INCREASED [None]
  - VANISHING BILE DUCT SYNDROME [None]
